FAERS Safety Report 6310813-7 (Version None)
Quarter: 2009Q3

REPORT INFORMATION
  Report Type: 
  Country: None (occurrence: None)
  Receive Date: 20090812
  Receipt Date: 20090805
  Transmission Date: 20100115
  Serious: Yes (Other)
  Sender: FDA-Public Use
  Company Number: TPA2009A02215

PATIENT
  Age: 38 Year
  Sex: Male
  Weight: 113.3993 kg

DRUGS (9)
  1. ACTOS [Suspect]
     Indication: TYPE 2 DIABETES MELLITUS
     Dosage: 45 MG, 1 IN 1 D, PER ORAL; LATE/2003 OR EARLY /2004
     Route: 048
     Dates: start: 20020401, end: 20030101
  2. ACTOS [Suspect]
     Indication: TYPE 2 DIABETES MELLITUS
     Dosage: 45 MG, 1 IN 1 D, PER ORAL; LATE/2003 OR EARLY /2004
     Route: 048
     Dates: start: 20030101, end: 20090803
  3. CADUET [Concomitant]
  4. QUINAPRIL HCL [Concomitant]
  5. JANUVIA (ALL OTHER THERAPEUTIC PRODUCTS) [Concomitant]
  6. KLONOPIN [Concomitant]
  7. PLAVIX [Concomitant]
  8. UNKNOWN ANTIDEPRESSANT (ANTIDEPRESSANTS) [Concomitant]
  9. XANAX [Concomitant]

REACTIONS (9)
  - ANXIETY [None]
  - ATRIAL FIBRILLATION [None]
  - CARDIAC FAILURE CONGESTIVE [None]
  - CORONARY ARTERY OCCLUSION [None]
  - GASTROOESOPHAGEAL REFLUX DISEASE [None]
  - MYOCARDIAL INFARCTION [None]
  - PANIC ATTACK [None]
  - WEIGHT DECREASED [None]
  - WEIGHT INCREASED [None]
